FAERS Safety Report 5390474-4 (Version None)
Quarter: 2007Q3

REPORT INFORMATION
  Report Type: 
  Country: None (occurrence: None)
  Receive Date: 20070718
  Receipt Date: 20070416
  Transmission Date: 20080115
  Serious: No
  Sender: FDA-Public Use
  Company Number: US-KINGPHARMUSA00001-K200700482

PATIENT

DRUGS (5)
  1. LEVOXYL [Suspect]
     Indication: HYPOTHYROIDISM
     Dosage: 25 MCG, QD
     Route: 048
     Dates: start: 20060101, end: 20070301
  2. LEVOXYL [Suspect]
     Dosage: 50 MCG, QD
     Route: 048
  3. LEVOXYL [Suspect]
     Dosage: 12.5 MCG, BID
     Route: 048
     Dates: end: 20070301
  4. DAYQUIL  /00761701/ [Suspect]
     Indication: NASOPHARYNGITIS
     Dosage: UNK, QD
     Route: 048
     Dates: start: 20070201
  5. BENADRYL CHILDRENS ALLERGY/COLD [Suspect]
     Indication: NASOPHARYNGITIS
     Dosage: UNK, QD
     Route: 048
     Dates: start: 20070201

REACTIONS (7)
  - BLOOD THYROID STIMULATING HORMONE INCREASED [None]
  - DIZZINESS [None]
  - DYSPEPSIA [None]
  - FEELING DRUNK [None]
  - HEADACHE [None]
  - NASOPHARYNGITIS [None]
  - WEIGHT INCREASED [None]
